FAERS Safety Report 4882421-6 (Version None)
Quarter: 2006Q1

REPORT INFORMATION
  Report Type: 
  Country: None (occurrence: None)
  Receive Date: 20060117
  Receipt Date: 20051208
  Transmission Date: 20060701
  Serious: Yes (Death)
  Sender: FDA-Public Use
  Company Number: DE-SOLVAY-00305004095

PATIENT
  Sex: Male

DRUGS (1)
  1. ANDROTOP GEL 50 MG [Suspect]
     Indication: ILL-DEFINED DISORDER
     Dosage: DAILY DOSE:  UNKNOWN
     Route: 061

REACTIONS (2)
  - ERYTHEMA [None]
  - PRURITUS [None]
